FAERS Safety Report 4423736-5 (Version None)
Quarter: 2004Q3

REPORT INFORMATION
  Report Type: 
  Country: None (occurrence: None)
  Receive Date: 20040805
  Receipt Date: 20040722
  Transmission Date: 20050211
  Serious: Yes (Death, Hospitalization)
  Sender: FDA-Public Use
  Company Number: 2004-UK-00020UK

PATIENT
  Age: 90 Year
  Sex: Female
  Weight: 82 kg

DRUGS (7)
  1. MOBIC [Suspect]
     Dosage: 30 MG , PO
     Route: 048
     Dates: end: 20040105
  2. FLUOXETINE [Suspect]
     Dosage: 20 MG,1 IN 1 D, ORAL
     Route: 048
  3. ASPIRIN [Suspect]
     Dosage: 75 MG,  1 IN 1 D, PO
     Route: 048
  4. PREDNISOLONE [Suspect]
     Dosage: 2 TABELTS DAILY, 2 IN 1 D, PO
     Route: 048
  5. BUMETANIDE [Suspect]
     Dosage: 1 TABLET DAILY, 1 IN 1 D, PO
     Route: 048
  6. ENALAPRIL MALEATE [Suspect]
     Dosage: 20 MG  , 1 IN 1 D, PO
     Route: 048
  7. BELLADONNA EXTRACT (BELLADONNA EXTRACT) [Suspect]
     Dosage: 40 MG 1 IN 1 D, PO
     Route: 048

REACTIONS (1)
  - MELAENA [None]
